FAERS Safety Report 16097730 (Version 1)
Quarter: 2019Q1

REPORT INFORMATION
  Report Type: Spontaneous
  Country: GR (occurrence: GR)
  Receive Date: 20190320
  Receipt Date: 20190320
  Transmission Date: 20190418
  Serious: Yes (Other)
  Sender: FDA-Public Use
  Company Number: PHHY2019GR056453

PATIENT
  Age: 53 Year
  Sex: Female

DRUGS (2)
  1. METHOTREXATE. [Suspect]
     Active Substance: METHOTREXATE
     Indication: SAPHO SYNDROME
     Dosage: UNK
     Route: 065
     Dates: start: 2012
  2. ZOLEDRONATE [Suspect]
     Active Substance: ZOLEDRONIC ACID
     Indication: SAPHO SYNDROME
     Dosage: UNK
     Route: 042
     Dates: start: 2011

REACTIONS (8)
  - SAPHO syndrome [Unknown]
  - Pain [Unknown]
  - Bone lesion [Unknown]
  - Pyrexia [Unknown]
  - Drug ineffective [Unknown]
  - Product use in unapproved indication [Unknown]
  - Condition aggravated [Unknown]
  - Hepatotoxicity [Unknown]
